FAERS Safety Report 10636712 (Version 9)
Quarter: 2016Q2

REPORT INFORMATION
  Report Type: Report from Study
  Country: CA (occurrence: CA)
  Receive Date: 20141208
  Receipt Date: 20160421
  Transmission Date: 20160815
  Serious: Yes (Hospitalization, Other)
  Sender: FDA-Public Use
  Company Number: CA-ROCHE-1043927

PATIENT
  Age: 61 Year
  Sex: Female
  Weight: 72.6 kg

DRUGS (14)
  1. METHYLPREDNISOLONE. [Concomitant]
     Active Substance: METHYLPREDNISOLONE
     Route: 042
     Dates: start: 20100526
  2. PLAQUENIL [Concomitant]
     Active Substance: HYDROXYCHLOROQUINE SULFATE
  3. ACETAMINOPHEN. [Concomitant]
     Active Substance: ACETAMINOPHEN
     Route: 048
     Dates: start: 20100526
  4. DIPHENHYDRAMINE HCL [Concomitant]
     Active Substance: DIPHENHYDRAMINE HYDROCHLORIDE
     Indication: PREMEDICATION
     Route: 048
     Dates: start: 20110816, end: 20110816
  5. DIPHENHYDRAMINE HCL [Concomitant]
     Active Substance: DIPHENHYDRAMINE HYDROCHLORIDE
     Route: 048
     Dates: start: 20100526
  6. RITUXAN [Suspect]
     Active Substance: RITUXIMAB
     Indication: RHEUMATOID ARTHRITIS
     Dosage: DATE OF LAST DOSE OF RITUXIMAB: 08/APR/2014: LAST DOSE 24/FEB/2015
     Route: 042
     Dates: start: 20100526
  7. FOSAMAX [Concomitant]
     Active Substance: ALENDRONATE SODIUM
  8. METHYLPREDNISOLONE. [Concomitant]
     Active Substance: METHYLPREDNISOLONE
     Indication: PREMEDICATION
     Route: 042
     Dates: start: 20100526, end: 20110816
  9. NEXIUM [Concomitant]
     Active Substance: ESOMEPRAZOLE MAGNESIUM
  10. TYLENOL [Concomitant]
     Active Substance: ACETAMINOPHEN
  11. FERROUS SULFATE. [Concomitant]
     Active Substance: FERROUS SULFATE
  12. CELEBREX [Concomitant]
     Active Substance: CELECOXIB
  13. RITUXAN [Suspect]
     Active Substance: RITUXIMAB
     Route: 042
     Dates: start: 20121025, end: 20121025
  14. ACETAMINOPHEN. [Concomitant]
     Active Substance: ACETAMINOPHEN
     Indication: PREMEDICATION
     Route: 065
     Dates: start: 20121010, end: 20121010

REACTIONS (14)
  - Productive cough [Unknown]
  - Rash [Unknown]
  - Blood magnesium decreased [Unknown]
  - Throat irritation [Recovered/Resolved]
  - Oropharyngeal discomfort [Recovering/Resolving]
  - Ill-defined disorder [Recovering/Resolving]
  - Infusion related reaction [Recovered/Resolved]
  - Cough [Unknown]
  - Pneumonia [Recovering/Resolving]
  - Infusion related reaction [Unknown]
  - Cough [Recovered/Resolved]
  - Pharyngeal paraesthesia [Unknown]
  - Colitis microscopic [Unknown]
  - Diarrhoea [Unknown]

NARRATIVE: CASE EVENT DATE: 20110816
